FAERS Safety Report 9288252 (Version 1)
Quarter: 2013Q2

REPORT INFORMATION
  Report Type: Not Available
  Country: FR (occurrence: FR)
  Receive Date: 20130513
  Receipt Date: 20130513
  Transmission Date: 20140414
  Serious: Yes (Hospitalization)
  Sender: FDA-Public Use
  Company Number: FR-RB-053446-13

PATIENT
  Sex: Female

DRUGS (5)
  1. SUBUTEX [Suspect]
     Indication: PRODUCT USED FOR UNKNOWN INDICATION
     Dosage: 10-15 TIMES PER DAY
     Route: 042
     Dates: start: 2000
  2. INTELENCE [Concomitant]
     Indication: HIV TEST POSITIVE
     Dosage: UNKNOWN DOSING DETAILS
     Route: 065
  3. NORVIR [Concomitant]
     Indication: HIV TEST POSITIVE
     Dosage: UNKNOWN DOSING DETAILS
     Route: 065
  4. PREZISTA [Concomitant]
     Indication: HIV TEST POSITIVE
     Dosage: UNKNOWN DOSING DETAILS
     Route: 065
  5. ISENTRESS [Concomitant]
     Indication: HIV TEST POSITIVE
     Dosage: UNKNOWN DOSING DETAILS
     Route: 065

REACTIONS (6)
  - Hepatosplenomegaly [Unknown]
  - Pancytopenia [Unknown]
  - Hepatic fibrosis [Unknown]
  - Thrombocytopenia [Unknown]
  - Intentional drug misuse [Unknown]
  - Overdose [Unknown]
